FAERS Safety Report 6123785-5 (Version None)
Quarter: 2009Q1

REPORT INFORMATION
  Report Type: 
  Country: None (occurrence: None)
  Receive Date: 20090317
  Receipt Date: 20090309
  Transmission Date: 20090719
  Serious: Yes (Hospitalization)
  Sender: FDA-Public Use
  Company Number: TCI2009A00744

PATIENT
  Age: 68 Year
  Sex: Female

DRUGS (6)
  1. AG-1749 (LANSOPRAZOLE) [Suspect]
     Indication: PROPHYLAXIS AGAINST GASTROINTESTINAL ULCER
     Dosage: (15MG) ORAL
     Route: 048
     Dates: start: 20080425
  2. ASPARA-CA (ASPARTATE CALCIUM) [Concomitant]
  3. PREDNISOLONE [Concomitant]
  4. PREDNISOLONE [Concomitant]
  5. LORCAM (LORNOXICAM) [Concomitant]
  6. BONALON (ALENDRONIC ACID) [Concomitant]

REACTIONS (2)
  - NASOPHARYNGITIS [None]
  - OVARIAN NEOPLASM [None]
